FAERS Safety Report 5376270-2 (Version None)
Quarter: 2007Q3

REPORT INFORMATION
  Report Type: 
  Country: None (occurrence: None)
  Receive Date: 20070702
  Receipt Date: 20070626
  Transmission Date: 20080115
  Serious: Yes (Hospitalization)
  Sender: FDA-Public Use
  Company Number: AU-ROCHE-504150

PATIENT
  Age: 27 Year
  Sex: Male

DRUGS (1)
  1. ROACCUTANE [Suspect]
     Indication: DRUG USE FOR UNKNOWN INDICATION
     Route: 065
     Dates: start: 20070601

REACTIONS (4)
  - EPISTAXIS [None]
  - HAEMOPTYSIS [None]
  - INFLUENZA [None]
  - RHINORRHOEA [None]
